FAERS Safety Report 5477470-3 (Version None)
Quarter: 2007Q4

REPORT INFORMATION
  Report Type: 
  Country: None (occurrence: None)
  Receive Date: 20071001
  Receipt Date: 20070917
  Transmission Date: 20080405
  Serious: Yes (Life-Threatening, Hospitalization)
  Sender: FDA-Public Use
  Company Number: FABR-12177

PATIENT
  Sex: Male

DRUGS (8)
  1. FABRAZYME [Suspect]
     Indication: FABRY'S DISEASE
     Dosage: 35 MG IV
     Route: 042
  2. LOPERAMIDE HCL [Suspect]
     Indication: DIARRHOEA
  3. ASPIRIN [Concomitant]
  4. CARBAMAZEPINE [Concomitant]
  5. SOTALOL HYDROCHLORIDE [Concomitant]
  6. PROCYCLIDINE HYDROCHLORIDE 2MG TAB [Concomitant]
  7. LANSOPRASOLE [Concomitant]
  8. NICORANDIL [Concomitant]

REACTIONS (1)
  - HYPERSENSITIVITY [None]
